FAERS Safety Report 22201117 (Version 1)
Quarter: 2023Q2

REPORT INFORMATION
  Report Type: Spontaneous
  Country: US (occurrence: US)
  Receive Date: 20230412
  Receipt Date: 20230412
  Transmission Date: 20230721
  Serious: No
  Sender: FDA-Public Use
  Company Number: US-JNJFOC-20191237674

PATIENT
  Age: 62 Year
  Sex: Female
  Weight: 63.106 kg

DRUGS (1)
  1. IMODIUM A-D [Suspect]
     Active Substance: LOPERAMIDE HYDROCHLORIDE
     Indication: Irritable bowel syndrome
     Dosage: 1/2 OF A PILL AND ANOTHER HALF  (1CAPLET) (AS NEEDED) 2-3X A WEEKS
     Route: 048

REACTIONS (2)
  - Product packaging issue [Unknown]
  - Incorrect dosage administered [Unknown]
